FAERS Safety Report 4410733-9 (Version None)
Quarter: 2004Q2

REPORT INFORMATION
  Report Type: 
  Country: None (occurrence: None)
  Receive Date: 20040630
  Receipt Date: 20040427
  Transmission Date: 20050107
  Serious: No
  Sender: FDA-Public Use
  Company Number: 04P-163-0258884-00

PATIENT
  Age: 63 Year
  Sex: Female
  Weight: 54.4316 kg

DRUGS (9)
  1. HUMIRA [Suspect]
     Indication: RHEUMATOID ARTHRITIS
     Dosage: 40 MG, 1 IN 2 WK, SUBCUTANEOUS
     Route: 058
     Dates: start: 20030520, end: 20040401
  2. PREDNISONE [Concomitant]
  3. LEVOTHYROXINE SODIUM [Concomitant]
  4. PROPACET 100 [Concomitant]
  5. SALSALATE [Concomitant]
  6. DOXYCYCLINE [Concomitant]
  7. IRON [Concomitant]
  8. MULTI-VITAMINS [Concomitant]
  9. CALCIUM [Concomitant]

REACTIONS (2)
  - DRUG INEFFECTIVE [None]
  - WHITE BLOOD CELL COUNT INCREASED [None]
